FAERS Safety Report 21747365 (Version 1)
Quarter: 2022Q4

REPORT INFORMATION
  Report Type: Spontaneous
  Country: BE (occurrence: BE)
  Receive Date: 20221219
  Receipt Date: 20221219
  Transmission Date: 20230112
  Serious: Yes (Other)
  Sender: FDA-Public Use
  Company Number: None

PATIENT
  Age: 54 Year
  Sex: Female

DRUGS (1)
  1. TERBINAFINE [Suspect]
     Active Substance: TERBINAFINE
     Indication: Onychomycosis
     Dosage: 250 MG
     Route: 048
     Dates: start: 20210402, end: 20210422

REACTIONS (4)
  - Hypersensitivity vasculitis [Recovered/Resolved]
  - C-reactive protein increased [Recovered/Resolved]
  - Urticarial vasculitis [Recovered/Resolved]
  - Blood immunoglobulin E increased [Recovered/Resolved]

NARRATIVE: CASE EVENT DATE: 20210422
